FAERS Safety Report 7989984-2 (Version None)
Quarter: 2011Q4

REPORT INFORMATION
  Report Type: 
  Country: None (occurrence: None)
  Receive Date: 20111219
  Receipt Date: 20110411
  Transmission Date: 20120403
  Serious: No
  Sender: FDA-Public Use
  Company Number: US-ASTRAZENECA-2011SE20480

PATIENT
  Age: 70 Year
  Sex: Male
  Weight: 113.4 kg

DRUGS (5)
  1. NIACIN [Concomitant]
  2. VITAMIN D [Concomitant]
     Indication: MEDICAL DIET
  3. NAPROXEN SODIUM [Concomitant]
     Indication: ARTHRITIS
  4. LOUSARTEN [Concomitant]
     Indication: BLOOD PRESSURE
  5. CRESTOR [Suspect]
     Route: 048

REACTIONS (1)
  - DYSGEUSIA [None]
